FAERS Safety Report 4541588-X (Version None)
Quarter: 2004Q4

REPORT INFORMATION
  Report Type: 
  Country: None (occurrence: None)
  Receive Date: 20041227
  Receipt Date: 20041217
  Transmission Date: 20050328
  Serious: Yes (Other)
  Sender: FDA-Public Use
  Company Number: 2004-12-0953

PATIENT
  Age: 73 Year
  Sex: Female

DRUGS (2)
  1. RINDERON (BETAMETHASONE SODIUM PHOSPHATE) INJECTABLE SOLUTION  LIKE CE [Suspect]
     Indication: PAROPHTHALMIA
     Dosage: 6 MG QD OPHTHALMIC
     Route: 047
  2. RINDERON (BETAMETHASONE SODIUM PHOSPHATE) INJECTABLE SOLUTION [Suspect]

REACTIONS (4)
  - CORNEAL EPITHELIUM DISORDER [None]
  - ENOPHTHALMOS [None]
  - EYE MOVEMENT DISORDER [None]
  - EYELID DISORDER [None]
